FAERS Safety Report 5244079-6 (Version None)
Quarter: 2007Q1

REPORT INFORMATION
  Report Type: 
  Country: None (occurrence: None)
  Receive Date: 20070222
  Receipt Date: 20070216
  Transmission Date: 20070707
  Serious: Yes (Other)
  Sender: FDA-Public Use
  Company Number: DE-BRACCO-BRO-011222

PATIENT
  Sex: Male

DRUGS (3)
  1. MULTIHANCE [Suspect]
     Route: 042
     Dates: start: 20070126, end: 20070126
  2. MULTIHANCE [Suspect]
     Route: 042
     Dates: start: 20070126, end: 20070126
  3. CONCOR                             /00802603/ [Concomitant]
     Route: 050

REACTIONS (1)
  - THROMBOPHLEBITIS [None]
